FAERS Safety Report 15849510 (Version 1)
Quarter: 2019Q1

REPORT INFORMATION
  Report Type: Spontaneous
  Country: AU (occurrence: AU)
  Receive Date: 20190121
  Receipt Date: 20190121
  Transmission Date: 20190417
  Serious: Yes (Other)
  Sender: FDA-Public Use
  Company Number: AU-ELI_LILLY_AND_COMPANY-AU201901008305

PATIENT
  Age: 94 Year
  Sex: Female

DRUGS (4)
  1. ZYPREXA [Suspect]
     Active Substance: OLANZAPINE
     Indication: ANXIETY
     Dosage: 2.5 MG, EACH EVENING
     Route: 048
  2. ZYPREXA [Suspect]
     Active Substance: OLANZAPINE
     Indication: AGITATION
  3. LANZEK [Concomitant]
     Indication: ANXIETY
  4. LANZEK [Concomitant]
     Indication: DEPRESSION

REACTIONS (5)
  - Drug ineffective [Unknown]
  - Cardiac failure [Unknown]
  - Mood swings [Unknown]
  - Decreased interest [Unknown]
  - Off label use [Unknown]
